FAERS Safety Report 4945404-3 (Version None)
Quarter: 2006Q1

REPORT INFORMATION
  Report Type: 
  Country: None (occurrence: None)
  Receive Date: 20060316
  Receipt Date: 20060304
  Transmission Date: 20060701
  Serious: Yes (Hospitalization)
  Sender: FDA-Public Use
  Company Number: NZ-GLAXOSMITHKLINE-B0415111A

PATIENT
  Sex: Female

DRUGS (1)
  1. MACLEANS PROTECT, MILDMINT [Suspect]
     Indication: DENTAL CARE

REACTIONS (2)
  - LOWER RESPIRATORY TRACT INFECTION [None]
  - PHARYNGITIS [None]
